FAERS Safety Report 4783306-6 (Version None)
Quarter: 2005Q3

REPORT INFORMATION
  Report Type: 
  Country: None (occurrence: None)
  Receive Date: 20050929
  Receipt Date: 20050920
  Transmission Date: 20060218
  Serious: Yes (Disabling)
  Sender: FDA-Public Use
  Company Number: 2005SE05303

PATIENT
  Age: 30 Year
  Sex: Male

DRUGS (2)
  1. BLOPRESS [Suspect]
     Indication: DRUG USE FOR UNKNOWN INDICATION
     Route: 048
  2. ANTIBIOTICS [Concomitant]
     Route: 065

REACTIONS (1)
  - ALOPECIA TOTALIS [None]
